FAERS Safety Report 19168507 (Version 2)
Quarter: 2021Q2

REPORT INFORMATION
  Report Type: Spontaneous
  Country: US (occurrence: US)
  Receive Date: 20210422
  Receipt Date: 20210507
  Transmission Date: 20210717
  Serious: No
  Sender: FDA-Public Use
  Company Number: US-SA-2021SA131089

PATIENT
  Age: 69 Year
  Sex: Male

DRUGS (30)
  1. VITAMIN C [Concomitant]
     Active Substance: ASCORBIC ACID
  2. CLOBETASOL [Concomitant]
     Active Substance: CLOBETASOL
  3. ISOSORBIDE. [Concomitant]
     Active Substance: ISOSORBIDE
  4. XTANDI [Concomitant]
     Active Substance: ENZALUTAMIDE
  5. ALEVE [Concomitant]
     Active Substance: NAPROXEN SODIUM
  6. NITROGLYCERIN. [Concomitant]
     Active Substance: NITROGLYCERIN
  7. VENTOLIN [Concomitant]
     Active Substance: ALBUTEROL SULFATE
  8. AMLODIPINE [Concomitant]
     Active Substance: AMLODIPINE BESYLATE
  9. MONTELUKAST [Concomitant]
     Active Substance: MONTELUKAST SODIUM
  10. FLOVENT [Concomitant]
     Active Substance: FLUTICASONE PROPIONATE
  11. DUPIXENT [Suspect]
     Active Substance: DUPILUMAB
     Indication: ASTHMA
  12. RANOLAZINE. [Concomitant]
     Active Substance: RANOLAZINE
  13. BETAMETHASONE. [Concomitant]
     Active Substance: BETAMETHASONE
  14. FLUTICASONE. [Concomitant]
     Active Substance: FLUTICASONE
  15. DUPIXENT [Suspect]
     Active Substance: DUPILUMAB
     Indication: DERMATITIS ATOPIC
     Dosage: 300 MG, QOW
     Route: 058
     Dates: start: 20201224
  16. FLOMAX [Concomitant]
     Active Substance: TAMSULOSIN HYDROCHLORIDE
  17. RANEXA [Concomitant]
     Active Substance: RANOLAZINE
  18. VITAMIN D3 [Concomitant]
     Active Substance: CHOLECALCIFEROL
  19. PROLIA [Concomitant]
     Active Substance: DENOSUMAB
  20. DAILY VITE [ASCORBIC ACID;COLECALCIFEROL;CYANOCOBALAMIN;FOLIC ACID;NIC [Concomitant]
  21. ASPIRIN. [Concomitant]
     Active Substance: ASPIRIN
  22. CRESTOR [Concomitant]
     Active Substance: ROSUVASTATIN CALCIUM
  23. ROSUVASTATIN. [Concomitant]
     Active Substance: ROSUVASTATIN
  24. ELIGARD [Suspect]
     Active Substance: LEUPROLIDE ACETATE
     Indication: PROSTATE CANCER
  25. TOBRAMYCIN + DEXAMETHASONE [Concomitant]
     Active Substance: DEXAMETHASONE\TOBRAMYCIN
  26. BIOTIN [Concomitant]
     Active Substance: BIOTIN
  27. FAMOTIDINE. [Concomitant]
     Active Substance: FAMOTIDINE
  28. ATENOLOL. [Concomitant]
     Active Substance: ATENOLOL
  29. CALCIUM [Concomitant]
     Active Substance: CALCIUM
  30. CETIRIZINE [Concomitant]
     Active Substance: CETIRIZINE HYDROCHLORIDE

REACTIONS (6)
  - Bursitis [Unknown]
  - Eczema [Recovering/Resolving]
  - Arthralgia [Unknown]
  - Joint range of motion decreased [Unknown]
  - Pruritus [Recovering/Resolving]
  - Dry skin [Recovering/Resolving]
